FAERS Safety Report 8078384-5 (Version None)
Quarter: 2012Q1

REPORT INFORMATION
  Report Type: 
  Country: None (occurrence: None)
  Receive Date: 20120123
  Receipt Date: 20120107
  Transmission Date: 20120608
  Serious: Yes (Other)
  Sender: FDA-Public Use
  Company Number: 1158877

PATIENT
  Age: 90 Year
  Sex: Male

DRUGS (4)
  1. PREDNISONE TAB [Concomitant]
  2. CEFTRIAXONE SODIUM [Suspect]
     Indication: ARTHRITIS BACTERIAL
     Dosage: 2 G/DAY,, INTRAVENOUS (NOT OTHERWISE SPECIFIED
  3. CEFTRIAXONE SODIUM [Suspect]
     Indication: GOUT
     Dosage: 2 G/DAY,, INTRAVENOUS (NOT OTHERWISE SPECIFIED
  4. VANCOMYCIN HYDROCHLORIDE [Concomitant]

REACTIONS (6)
  - HEPATIC ENCEPHALOPATHY [None]
  - ASTERIXIS [None]
  - SOMNOLENCE [None]
  - AUTOIMMUNE HEPATITIS [None]
  - LETHARGY [None]
  - ACUTE HEPATIC FAILURE [None]
